FAERS Safety Report 4317885-X (Version None)
Quarter: 2004Q1

REPORT INFORMATION
  Report Type: 
  Country: None (occurrence: None)
  Receive Date: 20040316
  Receipt Date: 20031121
  Transmission Date: 20041129
  Serious: Yes (Hospitalization)
  Sender: FDA-Public Use
  Company Number: WAES 0311GBR00223

PATIENT
  Sex: Male

DRUGS (8)
  1. AMILORIDE HYDROCHLORIDE AND FUROSEMIDE [Concomitant]
     Route: 048
  2. ASPIRIN [Suspect]
     Indication: ANGINA PECTORIS
     Route: 048
  3. ASPIRIN [Suspect]
     Indication: MYOCARDIAL INFARCTION
     Route: 048
  4. ATENOLOL [Concomitant]
     Indication: MYOCARDIAL INFARCTION
     Route: 048
  5. ATORVASTATIN CALCIUM [Concomitant]
     Indication: MYOCARDIAL INFARCTION
     Route: 048
  6. ISOSORBIDE MONONITRATE [Concomitant]
     Indication: ANGINA PECTORIS
     Route: 048
  7. NICORANDIL [Concomitant]
     Indication: ANGINA PECTORIS
     Route: 048
  8. VIOXX [Suspect]
     Route: 048
     Dates: start: 20030913, end: 20031013

REACTIONS (3)
  - HAEMATEMESIS [None]
  - HAEMOGLOBIN DECREASED [None]
  - MELAENA [None]
